FAERS Safety Report 10049179 (Version 1)
Quarter: 2014Q2

REPORT INFORMATION
  Report Type: Spontaneous
  Country: US (occurrence: US)
  Receive Date: 20140401
  Receipt Date: 20140401
  Transmission Date: 20141212
  Serious: No
  Sender: FDA-Public Use
  Company Number: US-009507513-1403USA010176

PATIENT
  Sex: Male

DRUGS (4)
  1. REMERON [Suspect]
     Indication: DEPRESSION
     Dosage: 45 MG, QD
     Route: 048
     Dates: start: 2006
  2. HALDOL [Suspect]
  3. COGENTIN [Concomitant]
     Dosage: UNK
  4. ASPIRIN [Concomitant]
     Dosage: UNK

REACTIONS (3)
  - Tardive dyskinesia [Recovered/Resolved]
  - Weight decreased [Recovered/Resolved]
  - Weight increased [Recovered/Resolved]
